FAERS Safety Report 9937247 (Version 2)
Quarter: 2014Q1

REPORT INFORMATION
  Report Type: Spontaneous
  Country: US (occurrence: US)
  Receive Date: 20140302
  Receipt Date: 20140302
  Transmission Date: 20141002
  Serious: Yes (Hospitalization)
  Sender: FDA-Public Use
  Company Number: 2014SP001043

PATIENT
  Age: 71 Year
  Sex: Male
  Weight: 106.2 kg

DRUGS (6)
  1. DOXORUBICIN [Suspect]
     Indication: SARCOMA METASTATIC
     Dates: start: 20131001
  2. DOXORUBICIN [Suspect]
     Indication: SARCOMA METASTATIC
     Dates: start: 20131003
  3. PROCHLORPERAZINE EDISYLATE [Concomitant]
     Dates: start: 20131003
  4. OXYCODONE [Concomitant]
     Dates: start: 20131003
  5. NEULASTA [Concomitant]
     Dates: start: 20131001
  6. MILK OF MAGNESIA [Concomitant]

REACTIONS (3)
  - Syncope [Recovered/Resolved]
  - Neutropenia [Recovered/Resolved]
  - Thrombocytopenia [Recovered/Resolved]
